FAERS Safety Report 12013099 (Version 1)
Quarter: 2016Q1

REPORT INFORMATION
  Report Type: Spontaneous
  Country: US (occurrence: US)
  Receive Date: 20160205
  Receipt Date: 20160205
  Transmission Date: 20160526
  Serious: Yes (Other)
  Sender: FDA-Public Use
  Company Number: US-GLAXOSMITHKLINE-US2016GSK017072

PATIENT
  Sex: Female

DRUGS (2)
  1. LAMICTAL XR [Suspect]
     Active Substance: LAMOTRIGINE
     Indication: PRODUCT USED FOR UNKNOWN INDICATION
     Dosage: 100 MG, UNK
  2. LAMICTAL XR [Suspect]
     Active Substance: LAMOTRIGINE
     Dosage: 50 MG, UNK

REACTIONS (6)
  - Surgery [Unknown]
  - Hospitalisation [Unknown]
  - Fracture [Unknown]
  - Emergency care [Unknown]
  - Tremor [Unknown]
  - Disability [Unknown]

NARRATIVE: CASE EVENT DATE: 2015
